FAERS Safety Report 6979691-7 (Version None)
Quarter: 2010Q3

REPORT INFORMATION
  Report Type: 
  Country: None (occurrence: None)
  Receive Date: 20100908
  Receipt Date: 20100825
  Transmission Date: 20110219
  Serious: Yes (Hospitalization)
  Sender: FDA-Public Use
  Company Number: 1000015833

PATIENT
  Age: 78 Year
  Sex: Male

DRUGS (1)
  1. MEMANTINE HCL [Suspect]
     Dosage: 10 MG (10 MG, 1 IN 1 D), ORAL
     Route: 048

REACTIONS (1)
  - ENCEPHALITIS [None]
